FAERS Safety Report 6166029-0 (Version None)
Quarter: 2009Q2

REPORT INFORMATION
  Report Type: 
  Country: None (occurrence: None)
  Receive Date: 20090424
  Receipt Date: 20090414
  Transmission Date: 20091009
  Serious: Yes (Other)
  Sender: FDA-Public Use
  Company Number: IT-RANBAXY-2009RR-23509

PATIENT
  Sex: Female

DRUGS (2)
  1. SERTRALINA RANBAXY 50MG COMPRESSE RIVESTITE CON FILM [Suspect]
     Indication: DEPRESSION
     Dosage: 50 MG, UNK
     Route: 048
     Dates: start: 20090220, end: 20090223
  2. ALPRAZOLAM [Concomitant]
     Indication: ANXIETY
     Dosage: UNK
     Dates: start: 20090220, end: 20090403

REACTIONS (1)
  - HOMICIDAL IDEATION [None]
